FAERS Safety Report 8528889-5 (Version None)
Quarter: 2012Q3

REPORT INFORMATION
  Report Type: 
  Country: None (occurrence: None)
  Receive Date: 20120723
  Receipt Date: 20120718
  Transmission Date: 20120928
  Serious: No
  Sender: FDA-Public Use
  Company Number: US-PFIZER INC-2012007188

PATIENT
  Sex: Female
  Weight: 63 kg

DRUGS (6)
  1. CHANTIX [Suspect]
     Indication: SMOKING CESSATION THERAPY
     Dosage: UNK
     Route: 048
  2. CHANTIX [Suspect]
     Dosage: 1 MG, 1X/DAY
  3. DIAZEPAM [Concomitant]
     Indication: DEPRESSION
     Dosage: 5 MG, DAILY
  4. CHANTIX [Suspect]
     Dosage: UNK
     Dates: start: 20120701
  5. TIAZAC [Concomitant]
     Indication: CARDIAC DISORDER
     Dosage: 250 MG, DAILY
  6. AMITRIPTYLINE [Concomitant]
     Indication: DEPRESSION
     Dosage: 10 MG, DAILY

REACTIONS (3)
  - NOCTURIA [None]
  - BLADDER DISORDER [None]
  - RENAL DISORDER [None]
